FAERS Safety Report 5025743-0 (Version None)
Quarter: 2006Q2

REPORT INFORMATION
  Report Type: 
  Country: None (occurrence: None)
  Receive Date: 20060614
  Receipt Date: 20060531
  Transmission Date: 20061013
  Serious: Yes (Hospitalization)
  Sender: FDA-Public Use
  Company Number: BR-NOVOPROD-253910

PATIENT
  Age: 22 Year
  Sex: Female
  Weight: 57 kg

DRUGS (2)
  1. LEVEMIR [Suspect]
     Indication: DIABETES MELLITUS
     Dosage: 32 IU, QD
  2. NOVORAPID FLEXPEN [Concomitant]
     Indication: DIABETES MELLITUS

REACTIONS (4)
  - HEADACHE [None]
  - HYPERGLYCAEMIA [None]
  - NAUSEA [None]
  - PAIN [None]
